FAERS Safety Report 7806868-0 (Version None)
Quarter: 2011Q4

REPORT INFORMATION
  Report Type: 
  Country: None (occurrence: None)
  Receive Date: 20111011
  Receipt Date: 20110922
  Transmission Date: 20120403
  Serious: No
  Sender: FDA-Public Use
  Company Number: US-ROXANE LABORATORIES, INC.-2011-RO-01130RO

PATIENT
  Sex: Male

DRUGS (2)
  1. DEXAMETHASONE [Suspect]
     Indication: ASTHMA
     Dosage: 8 MG
     Route: 048
     Dates: start: 20110805, end: 20110807
  2. ALBUTEROL [Concomitant]
     Indication: ASTHMA
     Route: 055

REACTIONS (4)
  - SEXUAL DYSFUNCTION [None]
  - SKIN STRIAE [None]
  - DRUG INEFFECTIVE [None]
  - INSOMNIA [None]
